FAERS Safety Report 6537688-5 (Version None)
Quarter: 2010Q1

REPORT INFORMATION
  Report Type: 
  Country: None (occurrence: None)
  Receive Date: 20100107
  Receipt Date: 20091223
  Transmission Date: 20100710
  Serious: Yes (Hospitalization)
  Sender: FDA-Public Use
  Company Number: 07-AUR-01357

PATIENT
  Age: 61 Year
  Sex: Male
  Weight: 85 kg

DRUGS (8)
  1. SIMVASTATIN [Suspect]
     Indication: HYPERCHOLESTEROLAEMIA
     Dosage: 40MG - DAILY - ORAL
     Route: 048
     Dates: start: 20050711
  2. ASPIRIN [Concomitant]
  3. BECLOMETHASONE DIPROPIONATE [Concomitant]
  4. CLOPIDOGREL [Concomitant]
  5. DOXAZOSIN 8MG [Concomitant]
  6. GLYCERYL TRINITRATE [Concomitant]
  7. NICORANDIL 20 MG [Concomitant]
  8. RAMIPRIL [Concomitant]

REACTIONS (3)
  - CONJUNCTIVITIS ALLERGIC [None]
  - DEPRESSION [None]
  - MYOCARDIAL INFARCTION [None]
